FAERS Safety Report 8503799 (Version 2)
Quarter: 2012Q4

REPORT INFORMATION
  Report Type: 
  Country: US (occurrence: US)
  Receive Date: 20120411
  Receipt Date: 20121217
  Transmission Date: 20130627
  Serious: Yes (Hospitalization, Other)
  Sender: FDA-Public Use
  Company Number: US-JNJFOC-20120401458

PATIENT
  Age: 45 None
  Sex: Female
  Weight: 110.22 kg

DRUGS (10)
  1. TOPAMAX [Suspect]
     Indication: FIBROMYALGIA
     Dosage: 100 mg twice a day
     Route: 048
     Dates: start: 2010, end: 201202
  2. NUCYNTA [Suspect]
     Indication: ARTHRITIS
     Dosage: 100 mg 10 times a day
     Route: 048
     Dates: start: 201106
  3. NUCYNTA [Suspect]
     Indication: ARTHRITIS
     Dosage: 100 mg 6 times a day
     Route: 048
     Dates: start: 2009, end: 201106
  4. NUCYNTA ER [Suspect]
     Indication: ARTHRITIS
     Dosage: 250 mg twice a day
     Route: 048
     Dates: end: 20120329
  5. NUCYNTA ER [Suspect]
     Indication: ARTHRITIS
     Dosage: 100 mg twice a day
     Route: 048
     Dates: start: 201110
  6. MORPHINE [Suspect]
     Indication: ARTHRITIS
     Dosage: 15 mg four times a day
     Route: 048
     Dates: start: 20120330
  7. MORPHINE [Suspect]
     Indication: ARTHRITIS
     Dosage: 40 mg as needed
     Route: 048
     Dates: start: 201107, end: 201110
  8. PRILOSEC [Suspect]
     Indication: HIATUS HERNIA
     Dosage: 40 mg daily
     Route: 048
     Dates: start: 201108
  9. PRILOSEC [Suspect]
     Indication: GASTROOESOPHAGEAL REFLUX DISEASE
     Dosage: 40 mg daily
     Route: 048
     Dates: start: 201108
  10. XIFAXAN [Suspect]
     Indication: HEPATIC ENCEPHALOPATHY
     Route: 048
     Dates: start: 201202

REACTIONS (12)
  - Abnormal loss of weight [Recovered/Resolved]
  - Hepatic encephalopathy [Not Recovered/Not Resolved]
  - Coma [Recovered/Resolved]
  - Hepatotoxicity [Recovered/Resolved]
  - Hiatus hernia [Not Recovered/Not Resolved]
  - Gastrooesophageal reflux disease [Not Recovered/Not Resolved]
  - Foot fracture [Recovered/Resolved]
  - Feeling abnormal [Recovered/Resolved]
  - Malaise [Recovered/Resolved]
  - Vomiting [Recovered/Resolved]
  - Hypersomnia [Recovered/Resolved]
  - Drug ineffective [Not Recovered/Not Resolved]
